FAERS Safety Report 4439906-6 (Version None)
Quarter: 2004Q3

REPORT INFORMATION
  Report Type: 
  Country: None (occurrence: None)
  Receive Date: 20040831
  Receipt Date: 20040823
  Transmission Date: 20050211
  Serious: Yes (Disabling)
  Sender: FDA-Public Use
  Company Number: HQWYE400409JUN04

PATIENT
  Age: 46 Year
  Sex: Female

DRUGS (2)
  1. EFFEXOR XR [Suspect]
     Indication: DEPRESSION
     Dosage: 150 MG 2X PER 1 DAY, ORAL
     Route: 048
     Dates: start: 19990101, end: 20040601
  2. ETHINYL ESTRADIOL W/NORGESTREL (ETHINYLESTRADIOL/NORGESTREL) [Concomitant]

REACTIONS (3)
  - CARDIAC FAILURE CONGESTIVE [None]
  - CARDIOMYOPATHY [None]
  - PULMONARY OEDEMA [None]
